FAERS Safety Report 5918697-3 (Version None)
Quarter: 2008Q4

REPORT INFORMATION
  Report Type: 
  Country: None (occurrence: None)
  Receive Date: 20081015
  Receipt Date: 20080611
  Transmission Date: 20090506
  Serious: No
  Sender: FDA-Public Use
  Company Number: US-ASTRAZENECA-2008UW11670

PATIENT
  Age: 76 Year
  Sex: Male
  Weight: 22.7 kg

DRUGS (5)
  1. SYMBICORT [Suspect]
     Indication: ASTHMA
     Dosage: 2 PUFFS 160/4.5 MG
     Route: 055
  2. SYMBICORT [Suspect]
     Dosage: 2 PUFFS 160/4.5 MG
     Route: 055
  3. ZYRTEC [Concomitant]
  4. MELOXICAM [Concomitant]
  5. LOVASTATIN [Concomitant]

REACTIONS (3)
  - ARTHRALGIA [None]
  - JOINT SWELLING [None]
  - OROPHARYNGEAL PAIN [None]
